FAERS Safety Report 10224712 (Version 1)
Quarter: 2014Q2

REPORT INFORMATION
  Report Type: Spontaneous
  Country: US (occurrence: US)
  Receive Date: 20140609
  Receipt Date: 20140609
  Transmission Date: 20141212
  Serious: Yes (Other)
  Sender: FDA-Public Use
  Company Number: US-CELGENEUS-163-10004-14060567

PATIENT
  Sex: Female
  Weight: 106.69 kg

DRUGS (1)
  1. OTEZLA [Suspect]
     Indication: PSORIATIC ARTHROPATHY
     Dosage: 60 MILLIGRAM
     Route: 048
     Dates: start: 20140526, end: 20140602

REACTIONS (1)
  - Malaise [Recovered/Resolved]
